FAERS Safety Report 7396365-1 (Version None)
Quarter: 2011Q2

REPORT INFORMATION
  Report Type: 
  Country: None (occurrence: None)
  Receive Date: 20110406
  Receipt Date: 20091114
  Transmission Date: 20111010
  Serious: Yes (Hospitalization, Other)
  Sender: FDA-Public Use
  Company Number: US-BAYER-200939580NA

PATIENT
  Sex: Male
  Weight: 99.773 kg

DRUGS (33)
  1. FEOSOL [Concomitant]
     Dosage: UNK
     Dates: start: 20060101
  2. HEPARIN [Concomitant]
     Dosage: 6000 UNITS, X2
     Route: 042
     Dates: start: 20060223, end: 20060223
  3. PROPOFOL [Concomitant]
     Dosage: 40 MG, UNK
     Route: 042
     Dates: start: 20060223, end: 20060223
  4. THIOPENTAL SODIUM [Concomitant]
     Dosage: 40 MG, UNK
     Route: 042
     Dates: start: 20060223, end: 20060223
  5. ACETYLSALICYLIC ACID SRT [Concomitant]
     Dosage: UNK
     Dates: start: 20060101
  6. DUONEB [Concomitant]
     Dosage: UNK
     Dates: start: 20060101
  7. APRESOLINE [Concomitant]
     Dosage: UNK
     Dates: start: 20060101
  8. VERSED [Concomitant]
     Dosage: 9 MG, UNK
     Route: 042
     Dates: start: 20060223, end: 20060223
  9. PAPAVERINE [Concomitant]
     Dosage: UNK
     Route: 042
     Dates: start: 20060223, end: 20060223
  10. NITROGLYCERIN [Concomitant]
     Dosage: 200 MG/ML, UNK
     Route: 042
     Dates: start: 20060223, end: 20060223
  11. LOPRESSOR [Concomitant]
     Dosage: UNK
     Dates: start: 20060101
  12. LASIX [Concomitant]
     Dosage: 20 MG, UNK
     Route: 042
     Dates: start: 20060223
  13. GLUCOTROL [Concomitant]
  14. ROBINUL [Concomitant]
     Dosage: 0.2 UNK, UNK
     Route: 042
     Dates: start: 20060223, end: 20060223
  15. PROTAMINE SULFATE [Concomitant]
     Indication: HEPARIN NEUTRALISATION THERAPY
     Dosage: UNK
     Route: 042
     Dates: start: 20060223
  16. SOMA [Concomitant]
     Dosage: 9 ML, UNK
     Route: 042
     Dates: start: 20060223
  17. MAGNESIUM SULFATE [Concomitant]
     Dosage: 2 G, UNK
     Route: 042
     Dates: start: 20060223
  18. TRASYLOL [Suspect]
     Indication: CORONARY ARTERY BYPASS
     Dosage: 1 ML, ONCE
     Route: 042
     Dates: start: 20060223, end: 20060223
  19. TRASYLOL [Suspect]
     Indication: IMPLANTABLE DEFIBRILLATOR INSERTION
  20. ADVAIR DISKUS 100/50 [Concomitant]
     Dosage: UNK
     Dates: start: 20060101
  21. HEPARIN [Concomitant]
     Dosage: 3000 UNITS, X3
     Route: 042
     Dates: start: 20060223, end: 20060223
  22. SODIUM BICARBONATE [Concomitant]
     Dosage: 50 MEQ, UNK
     Route: 042
     Dates: start: 20060223, end: 20060223
  23. LIDOCAINE [Concomitant]
     Indication: CARDIAC FIBRILLATION
     Dosage: 100 MG, UNK
     Route: 042
     Dates: start: 20060223, end: 20060223
  24. RED BLOOD CELLS [Concomitant]
     Dosage: 945 ML, UNK
     Dates: start: 20060223, end: 20060223
  25. TRASYLOL [Suspect]
     Indication: TRICUSPID VALVE REPAIR
     Dosage: 25 ML, Q1HR
     Route: 042
     Dates: start: 20060223, end: 20060223
  26. LANTUS [Concomitant]
     Dosage: 30 U, HS
  27. HUMALOG [Concomitant]
     Dosage: SLIDING SCALE
     Route: 058
  28. DARVOCET [Concomitant]
     Dosage: UNK
     Dates: start: 20060101
  29. MANNITOL [Concomitant]
     Dosage: 25 G, UNK
     Route: 042
     Dates: start: 20060223, end: 20060223
  30. TRASYLOL [Suspect]
     Indication: MITRAL VALVE REPAIR
     Dosage: 100 UNK, UNK
     Route: 042
     Dates: start: 20060223, end: 20060223
  31. PLAVIX [Concomitant]
  32. KEFZOL [Concomitant]
     Dosage: 1 G, UNK
     Route: 042
     Dates: start: 20060223
  33. CALCIUM CHLORIDE [Concomitant]
     Dosage: 1 UNK, UNK
     Dates: start: 20060223

REACTIONS (6)
  - RENAL FAILURE ACUTE [None]
  - PAIN [None]
  - RENAL FAILURE [None]
  - UNEVALUABLE EVENT [None]
  - INJURY [None]
  - EMOTIONAL DISTRESS [None]
